FAERS Safety Report 9871191 (Version 1)
Quarter: 2014Q1

REPORT INFORMATION
  Report Type: Spontaneous
  Country: US (occurrence: US)
  Receive Date: 20140205
  Receipt Date: 20140205
  Transmission Date: 20141002
  Serious: No
  Sender: FDA-Public Use
  Company Number: US-B.I. PHARMACEUTICALS,INC./RIDGEFIELD-2014-BI-03225BP

PATIENT
  Age: 73 Year
  Sex: Female

DRUGS (2)
  1. MOBIC [Suspect]
     Indication: PRODUCT USED FOR UNKNOWN INDICATION
     Dates: start: 200505, end: 200507
  2. METHOTREXATE [Suspect]
     Indication: PRODUCT USED FOR UNKNOWN INDICATION
     Dates: start: 200505, end: 200507

REACTIONS (3)
  - Dysuria [Unknown]
  - Chest discomfort [Unknown]
  - Nasopharyngitis [Unknown]
